FAERS Safety Report 6057162-2 (Version None)
Quarter: 2009Q1

REPORT INFORMATION
  Report Type: 
  Country: None (occurrence: None)
  Receive Date: 20090129
  Receipt Date: 20071231
  Transmission Date: 20090719
  Serious: No
  Sender: FDA-Public Use
  Company Number: A0701289A

PATIENT
  Sex: Female

DRUGS (1)
  1. WELLBUTRIN [Suspect]
     Indication: DEPRESSION
     Dosage: 150MG PER DAY
     Route: 048

REACTIONS (2)
  - ASTHENIA [None]
  - DEPRESSION [None]
